FAERS Safety Report 19029370 (Version 1)
Quarter: 2021Q1

REPORT INFORMATION
  Report Type: Report from Study
  Country: None (occurrence: US)
  Receive Date: 20210319
  Receipt Date: 20210319
  Transmission Date: 20210420
  Serious: Yes (Death)
  Sender: FDA-Public Use
  Company Number: US-ABBVIE-21K-163-3820625-00

PATIENT
  Age: 93 Year
  Sex: Male
  Weight: 56.75 kg

DRUGS (1)
  1. CREON [Suspect]
     Active Substance: PANCRELIPASE AMYLASE\PANCRELIPASE LIPASE\PANCRELIPASE PROTEASE
     Indication: PANCREATIC CYST
     Dosage: 2 CAPSULES PER MEAL 1 CAPSULE FOR DINNER
     Route: 048
     Dates: start: 2019, end: 202101

REACTIONS (8)
  - Intracardiac thrombus [Fatal]
  - Dysphagia [Fatal]
  - Gait disturbance [Fatal]
  - Transient ischaemic attack [Fatal]
  - Disorientation [Fatal]
  - Atrial fibrillation [Fatal]
  - Aspiration [Fatal]
  - Balance disorder [Fatal]

NARRATIVE: CASE EVENT DATE: 202011
